FAERS Safety Report 22794783 (Version 2)
Quarter: 2023Q4

REPORT INFORMATION
  Report Type: Spontaneous
  Country: BE (occurrence: BE)
  Receive Date: 20230807
  Receipt Date: 20231018
  Transmission Date: 20240109
  Serious: Yes (Other)
  Sender: FDA-Public Use
  Company Number: BE-JNJFOC-20230762827

PATIENT
  Age: 65 Year
  Sex: Male
  Weight: 80 kg

DRUGS (3)
  1. ERLEADA [Suspect]
     Active Substance: APALUTAMIDE
     Indication: Hormone-dependent prostate cancer
     Route: 048
     Dates: start: 20230412, end: 20230711
  2. ZOLPIDEM [Concomitant]
     Active Substance: ZOLPIDEM TARTRATE
     Indication: Insomnia
     Dosage: 5MG DD
     Route: 065
     Dates: start: 20230606
  3. TRIPTORELIN [Concomitant]
     Active Substance: TRIPTORELIN
     Indication: Prostate cancer
     Dosage: 11.25MG Q3M
     Route: 065

REACTIONS (1)
  - Hepatitis toxic [Recovered/Resolved]

NARRATIVE: CASE EVENT DATE: 20230705
